FAERS Safety Report 9073146 (Version 1)
Quarter: 2013Q1

REPORT INFORMATION
  Report Type: Report from Study
  Country: KR (occurrence: KR)
  Receive Date: 20130129
  Receipt Date: 20130129
  Transmission Date: 20140127
  Serious: Yes (Life-Threatening)
  Sender: FDA-Public Use
  Company Number: KR-NAPPMUNDI-GBR-2012-0012982

PATIENT
  Age: 66 Year
  Sex: Male

DRUGS (4)
  1. OXY CR [Suspect]
     Indication: CANCER PAIN
     Dosage: 40 MG, DAILY
     Route: 048
     Dates: start: 20110401
  2. OXY IR [Suspect]
     Indication: CANCER PAIN
     Dosage: 10 MG, DAILY
     Route: 065
  3. FENTANYL [Concomitant]
     Dosage: 12 MCG, Q1H
     Route: 062
     Dates: start: 20110401
  4. FENTANYL CITRATE [Concomitant]
     Dosage: 200 MCG, DAILY
     Dates: start: 20110401

REACTIONS (1)
  - Urinary retention [Unknown]
